FAERS Safety Report 9773408 (Version 1)
Quarter: 2013Q4

REPORT INFORMATION
  Report Type: Spontaneous
  Country: US (occurrence: US)
  Receive Date: 20131219
  Receipt Date: 20131219
  Transmission Date: 20140711
  Serious: Yes (Hospitalization)
  Sender: FDA-Public Use
  Company Number: US-BAXTER-2013BAX050582

PATIENT
  Age: 50 Year
  Sex: Male

DRUGS (4)
  1. DIANEAL PD2 (ULTRABAG) [Suspect]
     Indication: PERITONEAL DIALYSIS
     Route: 033
     Dates: start: 2005
  2. DIANEAL PD2 (ULTRABAG) [Suspect]
     Route: 033
     Dates: end: 201312
  3. DIANEAL PD2 (ULTRABAG) [Suspect]
     Indication: PERITONEAL DIALYSIS
     Route: 033
     Dates: start: 2005
  4. DIANEAL PD2 (ULTRABAG) [Suspect]
     Route: 033
     Dates: end: 201312

REACTIONS (1)
  - Peritonitis [Not Recovered/Not Resolved]
